FAERS Safety Report 8078817-4 (Version None)
Quarter: 2012Q1

REPORT INFORMATION
  Report Type: 
  Country: None (occurrence: None)
  Receive Date: 20120124
  Receipt Date: 20120118
  Transmission Date: 20120608
  Serious: Yes (Death, Hospitalization)
  Sender: FDA-Public Use
  Company Number: 2012SP002585

PATIENT
  Age: 40 Year
  Sex: Male

DRUGS (4)
  1. REBETOL [Suspect]
     Indication: HEPATITIS C
     Dosage: 200 MG;BID;PO
     Route: 048
     Dates: start: 20111208
  2. PEG-INTRON [Suspect]
     Indication: HEPATITIS C
     Dosage: 100 MCG;QW;IM, 100 MCG;QW;IM, 100 MCG;QW;IM
     Route: 030
     Dates: start: 20111208, end: 20111208
  3. PEG-INTRON [Suspect]
     Indication: HEPATITIS C
     Dosage: 100 MCG;QW;IM, 100 MCG;QW;IM, 100 MCG;QW;IM
     Route: 030
     Dates: start: 20111215, end: 20111215
  4. PEG-INTRON [Suspect]
     Indication: HEPATITIS C
     Dosage: 100 MCG;QW;IM, 100 MCG;QW;IM, 100 MCG;QW;IM
     Route: 030
     Dates: start: 20111221, end: 20111221

REACTIONS (3)
  - DYSPNOEA [None]
  - MEDICATION ERROR [None]
  - INCORRECT ROUTE OF DRUG ADMINISTRATION [None]
